FAERS Safety Report 18288520 (Version 1)
Quarter: 2020Q3

REPORT INFORMATION
  Report Type: Spontaneous
  Country: US (occurrence: US)
  Receive Date: 20200919
  Receipt Date: 20200919
  Transmission Date: 20201103
  Serious: Yes (Other)
  Sender: FDA-Public Use
  Company Number: None

PATIENT
  Age: 18 Year
  Sex: Male
  Weight: 99.9 kg

DRUGS (16)
  1. BUSPIRONE [Suspect]
     Active Substance: BUSPIRONE HYDROCHLORIDE
     Indication: MENTAL DISORDER
     Dosage: 1?3 TIMES A DAY
     Route: 048
  2. ZOFRAN [Concomitant]
     Active Substance: ONDANSETRON HYDROCHLORIDE
  3. PANTROPRAZOLE [Concomitant]
  4. FLOVENT HFA [Concomitant]
     Active Substance: FLUTICASONE PROPIONATE
  5. CARVEDILOL. [Concomitant]
     Active Substance: CARVEDILOL
  6. FERROUS SULFATE DR [Concomitant]
  7. MINIPRESS [Suspect]
     Active Substance: PRAZOSIN HYDROCHLORIDE
     Indication: PRODUCT USED FOR UNKNOWN INDICATION
  8. LEVOTHROXINE [Concomitant]
     Active Substance: LEVOTHYROXINE
  9. ASCORBIC ACID (VITAMIN C) [Concomitant]
     Active Substance: ASCORBIC ACID
  10. ABILIFY [Suspect]
     Active Substance: ARIPIPRAZOLE
     Indication: MENTAL DISORDER
     Dosage: ?          OTHER FREQUENCY:1?3 TIMES A DAY;?
     Route: 048
  11. GABAPENTIN. [Suspect]
     Active Substance: GABAPENTIN
     Indication: PRODUCT USED FOR UNKNOWN INDICATION
  12. OXYBUTYNIN. [Concomitant]
     Active Substance: OXYBUTYNIN CHLORIDE
  13. ALBUTEROL INHALER [Concomitant]
     Active Substance: ALBUTEROL
  14. MELATONIN [Concomitant]
     Active Substance: MELATONIN
  15. FLUOXETINE [Suspect]
     Active Substance: FLUOXETINE HYDROCHLORIDE
     Indication: MENTAL DISORDER
     Dosage: 1?3 TIMES A DAY
     Route: 048
  16. LITHIUM. [Suspect]
     Active Substance: LITHIUM
     Indication: MENTAL DISORDER
     Dosage: 1?3 TIMES A DAY
     Route: 048

REACTIONS (8)
  - Personality disorder [None]
  - Impulse-control disorder [None]
  - Paradoxical drug reaction [None]
  - Intellectual disability [None]
  - Affective disorder [None]
  - Depression [None]
  - Anxiety disorder [None]
  - Condition aggravated [None]

NARRATIVE: CASE EVENT DATE: 20100802
